FAERS Safety Report 9689289 (Version 1)
Quarter: 2013Q4

REPORT INFORMATION
  Report Type: Spontaneous
  Country: CA (occurrence: CA)
  Receive Date: 20131114
  Receipt Date: 20131114
  Transmission Date: 20140711
  Serious: Yes (Death)
  Sender: FDA-Public Use
  Company Number: CA-B.I. PHARMACEUTICALS,INC./RIDGEFIELD-2013-BI-37355CN

PATIENT
  Age: 26 Year
  Sex: Male
  Weight: 181 kg

DRUGS (6)
  1. TRAJENTA [Suspect]
     Dosage: 5 MG
     Route: 048
  2. FENOFIBRATE [Concomitant]
  3. GLUCOBAY [Concomitant]
  4. INSULIN [Concomitant]
  5. METFORMIN [Concomitant]
  6. PERINDOPRIL [Concomitant]

REACTIONS (4)
  - Pancreatitis acute [Fatal]
  - Shock [Fatal]
  - Renal failure [Fatal]
  - Hypotension [Fatal]
